FAERS Safety Report 14511811 (Version 2)
Quarter: 2018Q1

REPORT INFORMATION
  Report Type: Spontaneous
  Country: BE (occurrence: BE)
  Receive Date: 20180209
  Receipt Date: 20180329
  Transmission Date: 20180509
  Serious: Yes (Other)
  Sender: FDA-Public Use
  Company Number: PHHY2017BE200698

PATIENT
  Age: 81 Year
  Sex: Female

DRUGS (5)
  1. PACLITAXEL. [Suspect]
     Active Substance: PACLITAXEL
     Indication: OVARIAN CANCER
     Dosage: 80 MG/M2, Q3W
     Route: 042
     Dates: start: 20170601
  2. AVASTIN [Suspect]
     Active Substance: BEVACIZUMAB
     Dosage: 795 MG, Q3W
     Route: 042
     Dates: start: 20170824
  3. CARBOPLATIN. [Suspect]
     Active Substance: CARBOPLATIN
     Indication: OVARIAN CANCER
     Dosage: 1 OT, Q3W (DOSE: 2 AUC)
     Route: 042
     Dates: start: 20170601
  4. AVASTIN [Suspect]
     Active Substance: BEVACIZUMAB
     Dosage: 780 MG, Q3W
     Route: 042
     Dates: start: 20170713
  5. AVASTIN [Suspect]
     Active Substance: BEVACIZUMAB
     Indication: OVARIAN CANCER
     Dosage: 990 MG, Q3W
     Route: 042
     Dates: start: 20170601

REACTIONS (4)
  - Epistaxis [Recovered/Resolved]
  - Hypertension [Recovered/Resolved]
  - Oedema peripheral [Not Recovered/Not Resolved]
  - Neutrophil count decreased [Recovered/Resolved]

NARRATIVE: CASE EVENT DATE: 20170629
